FAERS Safety Report 23189550 (Version 1)
Quarter: 2023Q4

REPORT INFORMATION
  Report Type: Spontaneous
  Country: MY (occurrence: MY)
  Receive Date: 20231116
  Receipt Date: 20231116
  Transmission Date: 20240110
  Serious: Yes (Other)
  Sender: FDA-Public Use
  Company Number: MY-NOVITIUMPHARMA-2023MYNVP01975

PATIENT
  Sex: Female
  Weight: 2.32 kg

DRUGS (1)
  1. PYRIDOSTIGMINE BROMIDE [Suspect]
     Active Substance: PYRIDOSTIGMINE BROMIDE
     Indication: Product used for unknown indication

REACTIONS (2)
  - Myasthenia gravis neonatal [Unknown]
  - Foetal exposure during pregnancy [Unknown]
